FAERS Safety Report 9587550 (Version 1)
Quarter: 2013Q4

REPORT INFORMATION
  Report Type: Spontaneous
  Country: JP (occurrence: JP)
  Receive Date: 20131003
  Receipt Date: 20131003
  Transmission Date: 20140711
  Serious: Yes (Hospitalization, Disabling, Other)
  Sender: FDA-Public Use
  Company Number: JP-BAYER-2013-115941

PATIENT
  Age: 4 Year
  Sex: Female

DRUGS (1)
  1. ACETYLSALICYLIC ACID({=100 MG) [Suspect]
     Dosage: UNK
     Route: 048

REACTIONS (8)
  - Reye^s syndrome [None]
  - Quadriparesis [None]
  - Motor dysfunction [None]
  - Mental disability [None]
  - Gastric varices haemorrhage [Recovering/Resolving]
  - Portal hypertension [None]
  - Portal vein thrombosis [None]
  - Anaemia [None]
